FAERS Safety Report 9214784 (Version 1)
Quarter: 2013Q2

REPORT INFORMATION
  Report Type: Spontaneous
  Country: ES (occurrence: ES)
  Receive Date: 20130403
  Receipt Date: 20130403
  Transmission Date: 20140414
  Serious: Yes (Hospitalization)
  Sender: FDA-Public Use
  Company Number: ES-ELI_LILLY_AND_COMPANY-ES201303009337

PATIENT
  Age: 83 Year
  Sex: Female

DRUGS (3)
  1. CYMBALTA [Suspect]
     Indication: DEPRESSION
     Dosage: 60 MG, UNK
  2. MIRTAZAPIN [Concomitant]
  3. LORAZEPAM [Concomitant]

REACTIONS (8)
  - Biliary colic [Unknown]
  - Headache [Unknown]
  - Blood pressure increased [Unknown]
  - Tinnitus [Unknown]
  - Dry mouth [Unknown]
  - Diarrhoea [Unknown]
  - Constipation [Unknown]
  - Depressed mood [Unknown]
